FAERS Safety Report 9819416 (Version 2)
Quarter: 2014Q1

REPORT INFORMATION
  Report Type: Spontaneous
  Country: US (occurrence: US)
  Receive Date: 20140115
  Receipt Date: 20140122
  Transmission Date: 20141002
  Serious: Yes (Hospitalization)
  Sender: FDA-Public Use
  Company Number: US-LUNDBECK-DKLU1096596

PATIENT
  Sex: Male

DRUGS (3)
  1. ONFI [Suspect]
     Indication: PRODUCT USED FOR UNKNOWN INDICATION
  2. ONFI [Suspect]
  3. ONFI [Suspect]

REACTIONS (5)
  - Hypothermia [Recovered/Resolved]
  - Hyporesponsive to stimuli [Recovered/Resolved]
  - Infection [Unknown]
  - Confusional state [Recovered/Resolved]
  - Convulsion [Unknown]
